FAERS Safety Report 25771178 (Version 1)
Quarter: 2025Q3

REPORT INFORMATION
  Report Type: Spontaneous
  Country: US (occurrence: US)
  Receive Date: 20250908
  Receipt Date: 20250908
  Transmission Date: 20251020
  Serious: No
  Sender: DOMPE FARMACEUTICI
  Company Number: US-FARMAPROD-202503-1047

PATIENT
  Sex: Female
  Weight: 63.5 kg

DRUGS (32)
  1. OXERVATE [Suspect]
     Active Substance: CENEGERMIN-BKBJ
     Indication: Neurotrophic keratopathy
     Route: 047
     Dates: start: 20250313
  2. VORICONAZOLE [Concomitant]
     Active Substance: VORICONAZOLE
  3. VALTREX [Concomitant]
     Active Substance: VALACYCLOVIR HYDROCHLORIDE
  4. SOTALOL [Concomitant]
     Active Substance: SOTALOL
  5. SERTRALINE HYDROCHLORIDE [Concomitant]
     Active Substance: SERTRALINE HYDROCHLORIDE
  6. TRANSDERM SCOP [Concomitant]
     Active Substance: SCOPOLAMINE
  7. POLIHEXANIDE [Concomitant]
     Active Substance: POLIHEXANIDE
  8. PREDNISONE [Concomitant]
     Active Substance: PREDNISONE
  9. MIRALAX [Concomitant]
     Active Substance: POLYETHYLENE GLYCOL 3350
  10. OXYCODONE HYDROCHLORIDE [Concomitant]
     Active Substance: OXYCODONE HYDROCHLORIDE
  11. ONDANSETRON HYDROCHLORIDE [Concomitant]
     Active Substance: ONDANSETRON HYDROCHLORIDE
  12. VIGAMOX [Concomitant]
     Active Substance: MOXIFLOXACIN HYDROCHLORIDE
  13. IMPAVIDO [Concomitant]
     Active Substance: MILTEFOSINE
  14. METHOCARBAMOL [Concomitant]
     Active Substance: METHOCARBAMOL
  15. MILK OF MAGNESIA [Concomitant]
     Active Substance: MAGNESIUM HYDROXIDE
  16. DOXYCYCLINE HYCLATE [Concomitant]
     Active Substance: DOXYCYCLINE HYCLATE
  17. LORAZEPAM [Concomitant]
     Active Substance: LORAZEPAM
  18. VISBIOME GI CARE [Concomitant]
  19. ERYTHROMYCIN [Concomitant]
     Active Substance: ERYTHROMYCIN
  20. DORZOLAMIDE AND TIMOLOL [Concomitant]
     Active Substance: DORZOLAMIDE HYDROCHLORIDE\TIMOLOL MALEATE
  21. BENADRYL [Concomitant]
     Active Substance: DIPHENHYDRAMINE HYDROCHLORIDE
  22. ACETAMINOPHEN [Concomitant]
     Active Substance: ACETAMINOPHEN
  23. ZOLPIDEM TART [Concomitant]
  24. CLONAZEPAM [Concomitant]
     Active Substance: CLONAZEPAM
  25. METOPROLOL SUCCINATE [Concomitant]
     Active Substance: METOPROLOL SUCCINATE
  26. DOCUSATE SODIUM [Concomitant]
     Active Substance: DOCUSATE SODIUM
  27. SODIUM CHLORIDE [Concomitant]
     Active Substance: SODIUM CHLORIDE
  28. ESTRADIOL [Concomitant]
     Active Substance: ESTRADIOL
  29. TRIAMCINOLONE ACETONIDE [Concomitant]
     Active Substance: TRIAMCINOLONE ACETONIDE
  30. FAMOTIDINE [Concomitant]
     Active Substance: FAMOTIDINE
  31. PANTOPRAZOLE SODIUM [Concomitant]
     Active Substance: PANTOPRAZOLE SODIUM
  32. XARELTO [Concomitant]
     Active Substance: RIVAROXABAN

REACTIONS (1)
  - Fall [Unknown]
